FAERS Safety Report 15592439 (Version 2)
Quarter: 2018Q4

REPORT INFORMATION
  Report Type: Spontaneous
  Country: US (occurrence: US)
  Receive Date: 20181106
  Receipt Date: 20181109
  Transmission Date: 20190205
  Serious: No
  Sender: FDA-Public Use
  Company Number: US-PFIZER INC-2018443922

PATIENT
  Age: 35 Year
  Sex: Female
  Weight: 58.96 kg

DRUGS (4)
  1. EZFE [Concomitant]
     Indication: ANAEMIA
     Dosage: UNK
  2. VITAMIN D3 [Concomitant]
     Active Substance: CHOLECALCIFEROL
     Dosage: UNK UNK, DAILY
  3. VITAMIN B12 [HYDROXOCOBALAMIN ACETATE] [Concomitant]
     Dosage: UNK UNK, DAILY
  4. PROVERA [Suspect]
     Active Substance: MEDROXYPROGESTERONE ACETATE
     Indication: MENORRHAGIA
     Dosage: 5 MG, 1X/DAY
     Route: 048

REACTIONS (4)
  - Paraesthesia [Unknown]
  - Condition aggravated [Recovering/Resolving]
  - Menorrhagia [Recovering/Resolving]
  - Muscle spasms [Unknown]

NARRATIVE: CASE EVENT DATE: 20181021
